FAERS Safety Report 10027751 (Version 1)
Quarter: 2014Q1

REPORT INFORMATION
  Report Type: Spontaneous
  Country: US (occurrence: US)
  Receive Date: 20140321
  Receipt Date: 20140321
  Transmission Date: 20141002
  Serious: Yes (Hospitalization, Other)
  Sender: FDA-Public Use
  Company Number: US-MALLINCKRODT-T201401605

PATIENT
  Age: 71 Year
  Sex: Female
  Weight: 99.77 kg

DRUGS (1)
  1. EXALGO [Suspect]
     Indication: PAIN
     Dosage: 8 MG, QD
     Route: 048
     Dates: start: 20140228, end: 20140314

REACTIONS (10)
  - Abasia [Recovered/Resolved]
  - Chest discomfort [Recovered/Resolved]
  - Dyspnoea [Recovered/Resolved]
  - Vomiting [Recovered/Resolved]
  - Confusional state [Recovered/Resolved]
  - Euphoric mood [Recovered/Resolved]
  - Asthenia [Recovering/Resolving]
  - Dyskinesia [Recovering/Resolving]
  - Local swelling [Recovering/Resolving]
  - Vision blurred [Recovering/Resolving]
